FAERS Safety Report 7526869-X (Version None)
Quarter: 2011Q2

REPORT INFORMATION
  Report Type: 
  Country: None (occurrence: None)
  Receive Date: 20110606
  Receipt Date: 20110531
  Transmission Date: 20111010
  Serious: Yes (Life-Threatening, Hospitalization)
  Sender: FDA-Public Use
  Company Number: PHHY2011FR47279

PATIENT
  Sex: Female

DRUGS (5)
  1. PARKINANE [Concomitant]
     Dosage: 05 MG, QD
  2. CLOZAPINE [Suspect]
     Indication: SCHIZOPHRENIA, PARANOID TYPE
     Dosage: 125 MG, UNK
     Dates: start: 20110228, end: 20110519
  3. RISPERDAL [Concomitant]
     Dosage: 01 DF, BID
     Route: 042
  4. IMOVANE [Concomitant]
  5. HEPTAMINOL [Concomitant]

REACTIONS (27)
  - SOMNOLENCE [None]
  - STREPTOCOCCUS TEST POSITIVE [None]
  - DELIRIUM [None]
  - LEUKOPENIA [None]
  - CREATININE RENAL CLEARANCE DECREASED [None]
  - HYPOTENSION [None]
  - OBSTRUCTIVE AIRWAYS DISORDER [None]
  - COUGH [None]
  - ESCHERICHIA TEST POSITIVE [None]
  - STAPHYLOCOCCUS TEST POSITIVE [None]
  - RESPIRATORY TRACT CONGESTION [None]
  - AGRANULOCYTOSIS [None]
  - INCOHERENT [None]
  - BONE MARROW FAILURE [None]
  - HALLUCINATION [None]
  - CONVULSION [None]
  - PYREXIA [None]
  - DYSURIA [None]
  - SEPSIS [None]
  - ERYTHEMA [None]
  - TACHYCARDIA [None]
  - HEART RATE INCREASED [None]
  - URINE ANALYSIS ABNORMAL [None]
  - COSTOVERTEBRAL ANGLE TENDERNESS [None]
  - SKIN LESION [None]
  - HAEMODYNAMIC INSTABILITY [None]
  - CONFUSIONAL STATE [None]
